FAERS Safety Report 6746745-X (Version None)
Quarter: 2010Q2

REPORT INFORMATION
  Report Type: 
  Country: None (occurrence: None)
  Receive Date: 20100528
  Receipt Date: 20090707
  Transmission Date: 20101027
  Serious: No
  Sender: FDA-Public Use
  Company Number: A0795757A

PATIENT
  Age: 39 Year
  Sex: Female

DRUGS (8)
  1. VENTOLIN [Suspect]
     Indication: ASTHMA
     Dosage: 2PUFF VARIABLE DOSE
     Route: 055
     Dates: start: 20090401
  2. LORATADINE [Concomitant]
  3. KALETRA [Concomitant]
  4. TRUVADA [Concomitant]
  5. RANITIDINE [Concomitant]
  6. PROMETHAZINE [Concomitant]
  7. EPINEPHRINE [Concomitant]
  8. MULTI-VITAMIN [Concomitant]

REACTIONS (2)
  - DRUG INEFFECTIVE [None]
  - DRUG SCREEN FALSE POSITIVE [None]
